FAERS Safety Report 8564632-1 (Version None)
Quarter: 2012Q3

REPORT INFORMATION
  Report Type: 
  Country: None (occurrence: None)
  Receive Date: 20120803
  Receipt Date: 20120727
  Transmission Date: 20120928
  Serious: Yes (Other)
  Sender: FDA-Public Use
  Company Number: GB-UCBSA-062799

PATIENT
  Age: 72 Year
  Sex: Female

DRUGS (7)
  1. PREGABALIN [Concomitant]
     Indication: PAIN
     Route: 048
     Dates: start: 20100101
  2. LEFLUNOMIDE [Concomitant]
     Indication: RHEUMATOID ARTHRITIS
     Route: 048
     Dates: start: 20000101
  3. CIMZIA [Suspect]
     Indication: RHEUMATOID ARTHRITIS
     Route: 058
     Dates: start: 20120618, end: 20120704
  4. DILTIAZEM [Concomitant]
     Route: 048
  5. PREGABALIN [Concomitant]
     Indication: RHEUMATOID ARTHRITIS
     Route: 048
     Dates: start: 20100101
  6. SIMVASTATIN [Concomitant]
     Route: 048
  7. ASPIRIN [Concomitant]
     Dosage: DOSE:75 MG
     Route: 048

REACTIONS (2)
  - HYPERSENSITIVITY [None]
  - RASH [None]
